FAERS Safety Report 9210976 (Version 1)
Quarter: 2013Q2

REPORT INFORMATION
  Report Type: Spontaneous
  Country: IL (occurrence: IL)
  Receive Date: 20130404
  Receipt Date: 20130404
  Transmission Date: 20140414
  Serious: Yes (Hospitalization, Other)
  Sender: FDA-Public Use
  Company Number: IL-B.I. PHARMACEUTICALS,INC./RIDGEFIELD-2012-AP-00112RI

PATIENT
  Age: 80 Year
  Sex: Male

DRUGS (1)
  1. PRADAXA [Suspect]
     Dosage: 220 MG

REACTIONS (3)
  - Upper gastrointestinal haemorrhage [Recovered/Resolved]
  - Thrombocytopenia [Unknown]
  - Anaemia [Unknown]
